FAERS Safety Report 20102514 (Version 11)
Quarter: 2022Q3

REPORT INFORMATION
  Report Type: Report from Study
  Country: US (occurrence: US)
  Receive Date: 20211123
  Receipt Date: 20220822
  Transmission Date: 20221027
  Serious: Yes (Other)
  Sender: FDA-Public Use
  Company Number: US-GLAXOSMITHKLINE-US2021231031

PATIENT

DRUGS (5)
  1. NIRAPARIB [Suspect]
     Active Substance: NIRAPARIB
     Indication: Ovarian cancer
     Dosage: 200 MG, QD
     Dates: start: 202111
  2. NIRAPARIB [Suspect]
     Active Substance: NIRAPARIB
     Dosage: 200 MG, QD (PM WITHOUT FOOD)
     Route: 048
     Dates: start: 20211102
  3. NIRAPARIB [Suspect]
     Active Substance: NIRAPARIB
     Dosage: 200 MG, QD
     Route: 048
  4. NIRAPARIB [Suspect]
     Active Substance: NIRAPARIB
     Dosage: 100 MG, QD
     Route: 048
     Dates: start: 20220407
  5. NIRAPARIB [Suspect]
     Active Substance: NIRAPARIB
     Dosage: 200 MG, QD

REACTIONS (14)
  - Renal impairment [Recovered/Resolved]
  - Musculoskeletal chest pain [Recovered/Resolved]
  - Fluid intake reduced [Recovered/Resolved]
  - Myalgia [Recovering/Resolving]
  - Low density lipoprotein increased [Not Recovered/Not Resolved]
  - Blood cholesterol increased [Unknown]
  - Blood creatinine increased [Recovering/Resolving]
  - Dyspnoea [Recovered/Resolved]
  - Asthenia [Unknown]
  - Pain in extremity [Recovered/Resolved]
  - Arthralgia [Recovered/Resolved]
  - Mobility decreased [Recovering/Resolving]
  - Off label use [Unknown]
  - Product dose omission in error [Unknown]

NARRATIVE: CASE EVENT DATE: 20211101
